FAERS Safety Report 17805826 (Version 1)
Quarter: 2020Q2

REPORT INFORMATION
  Report Type: Report from Study
  Country: IE (occurrence: IE)
  Receive Date: 20200519
  Receipt Date: 20200519
  Transmission Date: 20200714
  Serious: Yes (Other)
  Sender: FDA-Public Use
  Company Number: IE-BAXTER-2020BAX009960

PATIENT
  Sex: Female

DRUGS (4)
  1. WATER FOR INJECTION [Suspect]
     Active Substance: WATER
     Indication: MEDICATION DILUTION
     Route: 042
     Dates: start: 20200501
  2. FLUCLOXACILLIN [Suspect]
     Active Substance: FLUCLOXACILLIN
     Indication: OSTEOMYELITIS
     Dosage: CI (CONTINUOUS INFUSION) OVER 23 HOURS
     Route: 042
     Dates: start: 20200501
  3. SODIUM CHLORIDE INTRAVENOUS INFUSION BP 0.9% W/V [Suspect]
     Active Substance: SODIUM CHLORIDE
     Indication: MEDICATION DILUTION
     Route: 042
     Dates: start: 20200501
  4. CITRATE BUFFER [Suspect]
     Active Substance: SODIUM CITRATE
     Indication: PRODUCT USED FOR UNKNOWN INDICATION
     Dosage: CITRATE BUFFER PH 6.5 -7.5
     Route: 042
     Dates: start: 20200501

REACTIONS (2)
  - Body temperature abnormal [Not Recovered/Not Resolved]
  - Musculoskeletal stiffness [Not Recovered/Not Resolved]

NARRATIVE: CASE EVENT DATE: 20200508
